FAERS Safety Report 5268752-9 (Version None)
Quarter: 2007Q1

REPORT INFORMATION
  Report Type: 
  Country: None (occurrence: None)
  Receive Date: 20070313
  Receipt Date: 20070302
  Transmission Date: 20070707
  Serious: Yes (Hospitalization, Other)
  Sender: FDA-Public Use
  Company Number: 200702AGG00580

PATIENT
  Age: 65 Year
  Sex: Female

DRUGS (6)
  1. AGGRASTAT [Suspect]
     Indication: ACUTE MYOCARDIAL INFARCTION
     Dosage: (INTRAVENOUS (NOT OTHERWISE SPECIFIED) )
     Route: 042
     Dates: start: 20070105, end: 20070106
  2. NEXIUM [Concomitant]
  3. CLOPIDOGREL BISULFATE [Concomitant]
  4. MON-CEDOCARD [Concomitant]
  5. ALLOPURINOL [Concomitant]
  6. ASPIRIN [Concomitant]

REACTIONS (1)
  - THROMBOSIS IN DEVICE [None]
